FAERS Safety Report 9604071 (Version 1)
Quarter: 2013Q4

REPORT INFORMATION
  Report Type: Other
  Country: GB (occurrence: GB)
  Receive Date: 20131008
  Receipt Date: 20131008
  Transmission Date: 20140711
  Serious: Yes (Other)
  Sender: FDA-Public Use
  Company Number: GB-GLENMARK GENERICS INC.-2013GMK006938

PATIENT
  Age: 30 Year
  Sex: Male

DRUGS (2)
  1. GABAPENTIN [Suspect]
     Indication: DEPENDENCE
     Dosage: 4500 MG, OD
     Route: 048
  2. BUPRENORPHINE [Concomitant]
     Indication: PRODUCT USED FOR UNKNOWN INDICATION
     Dosage: UNK

REACTIONS (1)
  - Withdrawal syndrome [Recovered/Resolved]
